FAERS Safety Report 15821312 (Version 1)
Quarter: 2019Q1

REPORT INFORMATION
  Report Type: Spontaneous
  Country: GB (occurrence: GB)
  Receive Date: 20190114
  Receipt Date: 20190114
  Transmission Date: 20190417
  Serious: Yes (Hospitalization)
  Sender: FDA-Public Use
  Company Number: GB-PFIZER INC-2019016710

PATIENT
  Age: 82 Year
  Sex: Female

DRUGS (1)
  1. LYRICA [Suspect]
     Active Substance: PREGABALIN
     Dosage: 100 MG, UNK

REACTIONS (6)
  - Somnolence [Unknown]
  - Lethargy [Unknown]
  - Product dispensing error [Unknown]
  - Mobility decreased [Unknown]
  - Wrong product administered [Unknown]
  - Chest pain [Unknown]

NARRATIVE: CASE EVENT DATE: 20181103
